FAERS Safety Report 5606805-3 (Version None)
Quarter: 2008Q1

REPORT INFORMATION
  Report Type: 
  Country: None (occurrence: None)
  Receive Date: 20080129
  Receipt Date: 20080124
  Transmission Date: 20080703
  Serious: Yes (Other)
  Sender: FDA-Public Use
  Company Number: US-ASTRAZENECA-2007UW27342

PATIENT
  Age: 38 Year
  Sex: Female
  Weight: 75.5 kg

DRUGS (3)
  1. SEROQUEL [Suspect]
     Indication: DEPRESSION
     Dosage: 25 MG, 100 MG, 200 MG, 300 MG, 600 MG, 800 MG
     Route: 048
     Dates: start: 20030901
  2. SEROQUEL [Suspect]
     Indication: SCHIZOAFFECTIVE DISORDER
     Dosage: 25 MG, 100 MG, 200 MG, 300 MG, 600 MG, 800 MG
     Route: 048
     Dates: start: 20030901
  3. PAROXETINE [Concomitant]
     Route: 048
     Dates: start: 20071115

REACTIONS (3)
  - BLOOD CHOLESTEROL INCREASED [None]
  - COLLAPSE OF LUNG [None]
  - TYPE 2 DIABETES MELLITUS [None]
